FAERS Safety Report 17346894 (Version 1)
Quarter: 2020Q1

REPORT INFORMATION
  Report Type: Spontaneous
  Country: FR (occurrence: FR)
  Receive Date: 20200130
  Receipt Date: 20200130
  Transmission Date: 20200409
  Serious: Yes (Death)
  Sender: FDA-Public Use
  Company Number: FR-SUN PHARMACEUTICAL INDUSTRIES LTD-2020RR-235005

PATIENT
  Age: 28 Year
  Sex: Female

DRUGS (7)
  1. PARACETAMOL [Suspect]
     Active Substance: ACETAMINOPHEN
     Indication: INTENTIONAL PRODUCT MISUSE
     Dosage: ()
     Route: 048
  2. CLOBAZAM. [Suspect]
     Active Substance: CLOBAZAM
     Dosage: NON PR?CIS?E ()
     Route: 048
     Dates: end: 2018
  3. CANNABIS [Suspect]
     Active Substance: CANNABIS SATIVA SUBSP. INDICA TOP
     Indication: PRODUCT USED FOR UNKNOWN INDICATION
     Dosage: NON PR?CIS?E ()
     Route: 065
     Dates: end: 2018
  4. PARACETAMOL [Suspect]
     Active Substance: ACETAMINOPHEN
     Dosage: ()
     Route: 048
  5. TRAMADOL. [Suspect]
     Active Substance: TRAMADOL
     Indication: INTENTIONAL PRODUCT MISUSE
     Dosage: NON PR?CIS?E ()
     Route: 048
  6. COCAINE [Suspect]
     Active Substance: COCAINE
     Indication: PRODUCT USED FOR UNKNOWN INDICATION
     Dosage: NON PR?CIS?E ()
     Route: 065
     Dates: end: 2018
  7. CLOBAZAM. [Suspect]
     Active Substance: CLOBAZAM
     Indication: INTENTIONAL PRODUCT MISUSE
     Dosage: ()
     Route: 048
     Dates: end: 2018

REACTIONS (1)
  - Drug abuse [Fatal]
